FAERS Safety Report 19643559 (Version 3)
Quarter: 2024Q1

REPORT INFORMATION
  Report Type: Report from Study
  Country: US (occurrence: US)
  Receive Date: 20210731
  Receipt Date: 20240305
  Transmission Date: 20240409
  Serious: Yes (Other)
  Sender: FDA-Public Use
  Company Number: US-SHIRE-US201911295AA

PATIENT
  Age: 10 Year
  Sex: Male

DRUGS (1)
  1. HUMAN IMMUNOGLOBULIN G [Suspect]
     Active Substance: HUMAN IMMUNOGLOBULIN G
     Indication: Primary immunodeficiency syndrome
     Dosage: 3 GRAM, 1/WEEK
     Route: 065

REACTIONS (6)
  - Coeliac disease [Recovering/Resolving]
  - Myopia [Unknown]
  - Face injury [Recovering/Resolving]
  - Swelling face [Recovering/Resolving]
  - Contusion [Recovering/Resolving]
  - Fatigue [Unknown]

NARRATIVE: CASE EVENT DATE: 20240304
